FAERS Safety Report 6698754-7 (Version None)
Quarter: 2010Q2

REPORT INFORMATION
  Report Type: 
  Country: None (occurrence: None)
  Receive Date: 20100427
  Receipt Date: 20100415
  Transmission Date: 20101027
  Serious: Yes (Other)
  Sender: FDA-Public Use
  Company Number: PHHY2010JP21348

PATIENT
  Age: 78 Year
  Sex: Male

DRUGS (4)
  1. ZOMETA [Suspect]
     Indication: METASTASES TO BONE
     Dosage: 4 MG, UNK
     Route: 041
     Dates: start: 20090130, end: 20090721
  2. DECADRON [Concomitant]
     Dosage: UNK
     Dates: start: 20090630
  3. OXYCONTIN [Concomitant]
     Indication: PAIN
     Dosage: 10 MG
  4. OXYCONTIN [Concomitant]
     Dosage: 40 MG
     Route: 048

REACTIONS (5)
  - INSOMNIA [None]
  - LOOSE TOOTH [None]
  - MALIGNANT NEOPLASM PROGRESSION [None]
  - OSTEONECROSIS [None]
  - PAIN [None]
